FAERS Safety Report 12162468 (Version 1)
Quarter: 2016Q1

REPORT INFORMATION
  Report Type: Spontaneous
  Country: US (occurrence: US)
  Receive Date: 20160309
  Receipt Date: 20160309
  Transmission Date: 20160526
  Serious: Yes (Other)
  Sender: FDA-Public Use
  Company Number: US-PFIZER INC-2016130786

PATIENT
  Age: 62 Year
  Sex: Female

DRUGS (2)
  1. DILANTIN [Suspect]
     Active Substance: PHENYTOIN
     Dosage: UNK
  2. KEPPRA [Suspect]
     Active Substance: LEVETIRACETAM
     Dosage: UNK

REACTIONS (5)
  - Seizure [Unknown]
  - Tremor [Unknown]
  - Condition aggravated [Unknown]
  - Fatigue [Unknown]
  - Loss of consciousness [Unknown]
